FAERS Safety Report 8301659-9 (Version None)
Quarter: 2012Q2

REPORT INFORMATION
  Report Type: 
  Country: None (occurrence: None)
  Receive Date: 20120420
  Receipt Date: 20120412
  Transmission Date: 20120825
  Serious: Yes (Other)
  Sender: FDA-Public Use
  Company Number: FR-ROCHE-1059473

PATIENT
  Age: 82 Year
  Sex: Female

DRUGS (2)
  1. LEFLUNOMIDE [Concomitant]
  2. ACTEMRA [Suspect]
     Indication: PRODUCT USED FOR UNKNOWN INDICATION
     Route: 042
     Dates: start: 20100701, end: 20120101

REACTIONS (1)
  - CONFUSIONAL STATE [None]
